FAERS Safety Report 4437709-X (Version None)
Quarter: 2004Q3

REPORT INFORMATION
  Report Type: 
  Country: None (occurrence: None)
  Receive Date: 20040831
  Receipt Date: 20030724
  Transmission Date: 20050211
  Serious: No
  Sender: FDA-Public Use
  Company Number: US-GLAXOSMITHKLINE-A0418391A

PATIENT
  Age: 57 Year
  Sex: Female

DRUGS (3)
  1. ZOVIRAX [Suspect]
     Route: 048
  2. VALTREX [Suspect]
     Dosage: 500MG PER DAY
     Route: 048
     Dates: start: 20030722, end: 20030723
  3. NEURONTIN [Concomitant]

REACTIONS (4)
  - MUSCLE SPASMS [None]
  - OESOPHAGEAL DISCOMFORT [None]
  - TINNITUS [None]
  - UNEXPECTED THERAPEUTIC DRUG EFFECT [None]
